FAERS Safety Report 9188974 (Version 2)
Quarter: 2013Q2

REPORT INFORMATION
  Report Type: Spontaneous
  Country: US (occurrence: US)
  Receive Date: 20130326
  Receipt Date: 20130412
  Transmission Date: 20140414
  Serious: No
  Sender: FDA-Public Use
  Company Number: US-009507513-1303USA011583

PATIENT
  Sex: Male

DRUGS (3)
  1. VICTRELIS [Suspect]
     Indication: HEPATITIS C
     Dosage: UNK
     Dates: start: 20121111
  2. REBETOL [Suspect]
     Indication: HEPATITIS C
     Dosage: 1200 MG , ONE PER ONE DAY, INDIVIDUAL DIVIDED DOSE OF 600\600
     Route: 048
  3. PEGASYS [Suspect]
     Indication: CHRONIC HEPATITIS C
     Dosage: 180 MICROGRAM, QW
     Route: 058
     Dates: start: 20121015

REACTIONS (4)
  - Subcutaneous abscess [Unknown]
  - Fatigue [Unknown]
  - Pyrexia [Recovered/Resolved]
  - Weight decreased [Recovered/Resolved]
